FAERS Safety Report 13652133 (Version 1)
Quarter: 2017Q2

REPORT INFORMATION
  Report Type: Report from Study
  Country: FR (occurrence: FR)
  Receive Date: 20170614
  Receipt Date: 20170614
  Transmission Date: 20170830
  Serious: Yes (Hospitalization)
  Sender: FDA-Public Use
  Company Number: FR-AMGEN-FRACT2012072513

PATIENT
  Age: 62 Year
  Sex: Female
  Weight: 55 kg

DRUGS (23)
  1. DIFFU-K [Concomitant]
     Active Substance: POTASSIUM CHLORIDE
     Dosage: 600 MG, UNK
     Route: 048
     Dates: start: 20120705, end: 20121220
  2. DUPHALAC [Concomitant]
     Active Substance: LACTULOSE
     Dosage: 15 ML, UNK
     Route: 048
     Dates: start: 20120719, end: 20121224
  3. CANTALENE [Concomitant]
     Dosage: UNK
     Route: 048
     Dates: start: 20120929, end: 20121006
  4. DAKTARIN [Concomitant]
     Active Substance: MICONAZOLE NITRATE
     Dosage: UNK
     Route: 048
     Dates: start: 20120801, end: 20120830
  5. SOLUPRED [Concomitant]
     Active Substance: PREDNISOLONE
     Dosage: 40 MG, UNK
     Route: 048
     Dates: start: 20120809, end: 20121112
  6. CYSTINE B6 [Concomitant]
     Dosage: UNK
     Route: 048
     Dates: start: 20120712, end: 20121109
  7. LASILIX [Concomitant]
     Active Substance: FUROSEMIDE
     Dosage: 40 MG, UNK
     Route: 048
     Dates: start: 20120705, end: 20121109
  8. GLYCEROL\PARAFFIN [Concomitant]
     Active Substance: GLYCERIN\PARAFFIN
     Dosage: UNK
     Route: 062
     Dates: start: 20121006, end: 20121126
  9. PREXIDINE [Concomitant]
     Dosage: UNK
     Route: 050
     Dates: start: 20121010, end: 20121116
  10. PACLITAXEL. [Concomitant]
     Active Substance: PACLITAXEL
     Indication: OVARIAN CANCER
     Dosage: 125.6 MG, UNK
     Route: 042
     Dates: start: 20120801
  11. ONDANSETRON [Concomitant]
     Active Substance: ONDANSETRON
     Dosage: 8 MG, UNK
     Route: 042
     Dates: start: 20120620
  12. AZANTAC [Concomitant]
     Active Substance: RANITIDINE HYDROCHLORIDE
     Dosage: 50 MG, UNK
     Route: 042
     Dates: start: 20120620
  13. DAFLON [Concomitant]
     Active Substance: DIOSMIN\HESPERIDIN
     Dosage: 500 MG, UNK
     Route: 048
     Dates: start: 20120626
  14. POLARAMINE [Concomitant]
     Active Substance: DEXCHLORPHENIRAMINE MALEATE
     Dosage: 5 MG, UNK
     Route: 042
     Dates: start: 20120620
  15. ALDACTONE [Concomitant]
     Active Substance: SPIRONOLACTONE
     Dosage: 50 MG, UNK
     Route: 048
     Dates: start: 20120817, end: 20121219
  16. DIPROSONE [Concomitant]
     Active Substance: BETAMETHASONE DIPROPIONATE
     Dosage: UNK
     Route: 062
     Dates: start: 20121004, end: 20121005
  17. BILASKA [Concomitant]
     Active Substance: BILASTINE
     Dosage: 20 MG, UNK
     Route: 048
     Dates: start: 20121011, end: 20121115
  18. SPASFON (PHLOROGLUCINOL, TRIMETHYLPHLOROGLUCINOL) [Concomitant]
     Active Substance: PHLOROGLUCINOL\1,3,5-TRIMETHOXYBENZENE
     Dosage: UNK
     Route: 048
     Dates: start: 20120712, end: 20120822
  19. METEOSPASMYL [Concomitant]
     Active Substance: ALVERINE CITRATE\DIMETHICONE
     Dosage: UNK
     Route: 048
     Dates: start: 20120802
  20. METHYLPREDNISOLONE. [Concomitant]
     Active Substance: METHYLPREDNISOLONE
     Dosage: 80 MG, UNK
     Route: 042
     Dates: start: 20120620
  21. FUNGIZONE [Concomitant]
     Active Substance: AMPHOTERICIN B
     Dosage: UNK
     Route: 048
     Dates: start: 20120615
  22. DESMODIUM MOLLICULUM [Concomitant]
     Dosage: UNK
     Route: 048
     Dates: start: 20120620, end: 20121109
  23. AMG 386 [Suspect]
     Active Substance: TREBANANIB
     Indication: OVARIAN CANCER
     Dosage: UNK UNK, QWK
     Dates: start: 20120620, end: 20121017

REACTIONS (1)
  - Generalised oedema [Recovered/Resolved]

NARRATIVE: CASE EVENT DATE: 20121024
